FAERS Safety Report 6411246-5 (Version None)
Quarter: 2009Q4

REPORT INFORMATION
  Report Type: 
  Country: None (occurrence: None)
  Receive Date: 20091020
  Receipt Date: 20091013
  Transmission Date: 20100525
  Serious: Yes (Death, Hospitalization)
  Sender: FDA-Public Use
  Company Number: 2009JP004278

PATIENT
  Age: 81 Year
  Sex: Male

DRUGS (8)
  1. PROGRAF [Suspect]
     Indication: RHEUMATOID ARTHRITIS
     Dosage: 2 MG, UID/QD, ORAL ; 1 MG, UID/QD, ORAL
     Route: 048
     Dates: start: 20090225, end: 20090703
  2. PROGRAF [Suspect]
     Indication: RHEUMATOID ARTHRITIS
     Dosage: 2 MG, UID/QD, ORAL ; 1 MG, UID/QD, ORAL
     Route: 048
     Dates: start: 20090704
  3. PREDNISOLONE [Concomitant]
  4. HISRACK (ETODOLAC) [Concomitant]
  5. LANSOPRAZOLE [Concomitant]
  6. CLARITHROMYCIN [Concomitant]
  7. DIOVAN [Concomitant]
  8. THEO-DUR [Concomitant]

REACTIONS (7)
  - DRUG LEVEL INCREASED [None]
  - FALL [None]
  - MENTAL DISORDER [None]
  - PNEUMONIA ASPIRATION [None]
  - RESPIRATORY DISORDER [None]
  - TREATMENT NONCOMPLIANCE [None]
  - WHEEZING [None]
